FAERS Safety Report 25908185 (Version 1)
Quarter: 2025Q4

REPORT INFORMATION
  Report Type: Report from Study
  Country: EU (occurrence: EU)
  Receive Date: 20251010
  Receipt Date: 20251010
  Transmission Date: 20260118
  Serious: Yes (Hospitalization)
  Sender: ABBVIE
  Company Number: EU-MIMS-BCONMC-18496

PATIENT
  Age: 35 Year
  Sex: Female

DRUGS (5)
  1. RINVOQ [Suspect]
     Active Substance: UPADACITINIB
     Indication: Product used for unknown indication
     Route: 048
     Dates: start: 20230322, end: 20240904
  2. HULIO [Suspect]
     Active Substance: ADALIMUMAB-FKJP
     Indication: Axial spondyloarthritis
     Dosage: FORM STRENGTH: 40MG /0.8ML
     Route: 065
     Dates: start: 20241216
  3. ETORICOXIB [Concomitant]
     Active Substance: ETORICOXIB
     Indication: Product used for unknown indication
     Dosage: FORM STRENGTH: 90 MILLIGRAM, DURATION: 7 DAYS A WEEK
     Dates: start: 20230313, end: 20241230
  4. METHOTREXATE [Concomitant]
     Active Substance: METHOTREXATE
     Indication: Product used for unknown indication
     Dosage: 15 MILLIGRAM EVERY ONE WEEK
     Dates: start: 20240607
  5. BIMZELX [Concomitant]
     Active Substance: BIMEKIZUMAB-BKZX
     Indication: Product used for unknown indication
     Dates: start: 20240912, end: 20241010

REACTIONS (1)
  - Endometriosis [Unknown]

NARRATIVE: CASE EVENT DATE: 20250428
